FAERS Safety Report 15395868 (Version 1)
Quarter: 2018Q3

REPORT INFORMATION
  Report Type: Spontaneous
  Country: TR (occurrence: TR)
  Receive Date: 20180918
  Receipt Date: 20180918
  Transmission Date: 20181010
  Serious: Yes (Other)
  Sender: FDA-Public Use
  Company Number: TR-LPDUSPRD-20181663

PATIENT
  Age: 35 Year
  Sex: Female
  Weight: 68 kg

DRUGS (4)
  1. DEKORT [Concomitant]
     Active Substance: DEXAMETHASONE
     Dosage: UNKNOWN
     Route: 065
  2. FERINJECT [Suspect]
     Active Substance: FERRIC CARBOXYMALTOSE
     Dosage: 1000 MG
     Route: 042
     Dates: start: 20180815, end: 20180815
  3. PREDNOL [Concomitant]
     Active Substance: METHYLPREDNISOLONE
     Dosage: 60 MG
     Route: 065
  4. AVIL [Concomitant]
     Active Substance: PHENIRAMINE
     Dosage: UNKNOWN
     Route: 065

REACTIONS (5)
  - Abdominal pain upper [Unknown]
  - Dyspnoea [Unknown]
  - Pruritus [Unknown]
  - Erythema [Unknown]
  - Oropharyngeal pain [Unknown]

NARRATIVE: CASE EVENT DATE: 20180815
